FAERS Safety Report 8200481-1 (Version None)
Quarter: 2012Q1

REPORT INFORMATION
  Report Type: 
  Country: None (occurrence: None)
  Receive Date: 20120306
  Receipt Date: 20120224
  Transmission Date: 20120608
  Serious: Yes (Hospitalization)
  Sender: FDA-Public Use
  Company Number: AUR-APL-2012-01145

PATIENT
  Age: 48 Year
  Sex: Female
  Weight: 65.3 kg

DRUGS (2)
  1. CENTRUM CARDIO (CENTRUM /00554501/) [Suspect]
     Indication: CARDIAC DISORDER
     Dosage: (2 IN 1 D), UNKNOWN
     Dates: start: 20120208, end: 20120222
  2. SIMVASTATIN [Suspect]
     Indication: BLOOD CHOLESTEROL INCREASED
     Dosage: (20 MG, 1 D), UNKNOWN

REACTIONS (7)
  - DEPRESSION [None]
  - DRUG INTERACTION [None]
  - IRRITABILITY [None]
  - ANGER [None]
  - DELUSION [None]
  - MANIA [None]
  - MENTAL DISORDER [None]
